FAERS Safety Report 5074681-6 (Version None)
Quarter: 2006Q3

REPORT INFORMATION
  Report Type: 
  Country: None (occurrence: None)
  Receive Date: 20060803
  Receipt Date: 20060718
  Transmission Date: 20061208
  Serious: Yes (Hospitalization, Other)
  Sender: FDA-Public Use
  Company Number: US200607003766

PATIENT
  Age: 80 Year
  Sex: Female

DRUGS (3)
  1. CYMBALTA [Suspect]
     Indication: NEURALGIA
     Dosage: 60 MG
     Dates: start: 20060101, end: 20060701
  2. LEXAPRO [Concomitant]
  3. ZOCOR [Concomitant]

REACTIONS (4)
  - ALANINE AMINOTRANSFERASE INCREASED [None]
  - ASPARTATE AMINOTRANSFERASE INCREASED [None]
  - FALL [None]
  - LOSS OF CONSCIOUSNESS [None]
